FAERS Safety Report 9557669 (Version 1)
Quarter: 2013Q3

REPORT INFORMATION
  Report Type: Spontaneous
  Country: FR (occurrence: FR)
  Receive Date: 20130926
  Receipt Date: 20130926
  Transmission Date: 20140515
  Serious: Yes (Death, Hospitalization, Other)
  Sender: FDA-Public Use
  Company Number: FR-PFIZER INC-2013270562

PATIENT
  Age: 74 Year
  Sex: Female

DRUGS (11)
  1. XANAX [Suspect]
     Indication: ANXIETY
     Dosage: 1 DF A DAY (0.25)
     Route: 048
     Dates: end: 20130811
  2. CITALOPRAM HBR [Suspect]
     Indication: DEPRESSION
     Dosage: 20 MG, 1X/DAY
     Route: 048
     Dates: end: 20130811
  3. PRETERAX [Suspect]
     Indication: HYPERTENSION
     Dosage: (10 MG/2.5 MG) 1 DF, 1X/DAY
     Route: 048
  4. PRETERAX [Suspect]
     Dosage: 1 DF, 3X/DAY
  5. PRETERAX [Suspect]
     Dosage: 1 DF, 1X/DAY
     Dates: end: 201308
  6. ABILIFY [Suspect]
     Indication: DEMENTIA
     Dosage: 7.5 MG A DAY (HALF OF A 15MG DOSAGE FORM)
     Route: 048
     Dates: start: 201307, end: 20130811
  7. LAMALINE [Suspect]
     Indication: PAIN
     Dosage: 3 DF, 1X/DAY
     Route: 048
     Dates: end: 20130811
  8. ZOPICLONE [Suspect]
     Indication: SLEEP DISORDER
     Dosage: 1 DF A DAY
     Dates: end: 20130811
  9. LOXAPAC [Suspect]
     Indication: DEMENTIA
     Dosage: 25 MG, 3 DF A DAY
     Route: 048
     Dates: start: 20130729, end: 20130811
  10. LANTUS [Concomitant]
     Indication: TYPE 2 DIABETES MELLITUS
     Dosage: 22 IU, DAILY
     Route: 058
     Dates: end: 20130811
  11. NOVORAPID [Concomitant]
     Indication: TYPE 2 DIABETES MELLITUS
     Dosage: 8 IU IN THE MORNING, 8 IU MIDDAY AND 12 IU IN THE EVENING
     Route: 058
     Dates: end: 20130811

REACTIONS (7)
  - Death [Fatal]
  - Somnolence [Unknown]
  - Renal failure acute [Unknown]
  - Inflammation [Unknown]
  - Pneumonia aspiration [Unknown]
  - Hyperglycaemia [Unknown]
  - Diabetic hyperosmolar coma [Unknown]
